FAERS Safety Report 14573657 (Version 2)
Quarter: 2018Q1

REPORT INFORMATION
  Report Type: Spontaneous
  Country: AU (occurrence: AU)
  Receive Date: 20180226
  Receipt Date: 20180302
  Transmission Date: 20180509
  Serious: Yes (Hospitalization, Disabling, Other)
  Sender: FDA-Public Use
  Company Number: AU-PFIZER INC-2018033067

PATIENT
  Age: 42 Year
  Sex: Male

DRUGS (13)
  1. DESMOPRESSION [Suspect]
     Active Substance: DESMOPRESSIN
     Dosage: 40 UG, 1X/DAY
  2. AMISULPRIDE [Suspect]
     Active Substance: AMISULPRIDE
     Dosage: 1200 MG, 1X/DAY
  3. ATORVASTATIN CALCIUM. [Suspect]
     Active Substance: ATORVASTATIN CALCIUM
     Dosage: 10 MG, 1X/DAY
  4. VITAMIN D [Suspect]
     Active Substance: CHOLECALCIFEROL
     Dosage: 2000 IU, 1X/DAY
  5. CLOPINE [Suspect]
     Active Substance: CLOZAPINE
     Indication: OBSESSIVE-COMPULSIVE DISORDER
  6. OLANZAPINE. [Suspect]
     Active Substance: OLANZAPINE
     Dosage: 5-10MG
  7. LORAZEPAM. [Suspect]
     Active Substance: LORAZEPAM
     Dosage: 2 MG, 1X/DAY
  8. CLOPINE [Suspect]
     Active Substance: CLOZAPINE
     Indication: SCHIZOPHRENIA
     Dosage: 600 MG, 1X/DAY NOCTE
     Dates: start: 20121002
  9. DIAZEPAM. [Suspect]
     Active Substance: DIAZEPAM
     Dosage: 5-10MG
  10. CLOMIPRAMINE [Suspect]
     Active Substance: CLOMIPRAMINE
     Dosage: 300 MG, 1X/DAY
  11. LITHIUM. [Suspect]
     Active Substance: LITHIUM
     Dosage: 450 MG, 1X/DAY
  12. COLOXYL WITH SENNA [Suspect]
     Active Substance: DOCUSATE\SENNOSIDES
     Dosage: 2 DF, 2X/DAY
  13. MOVICOL [Suspect]
     Active Substance: POLYETHYLENE GLYCOL 3350\POTASSIUM CHLORIDE\SODIUM BICARBONATE\SODIUM CHLORIDE
     Dosage: 2 DF, 2X/DAY

REACTIONS (4)
  - Psychotic symptom [Not Recovered/Not Resolved]
  - Seminoma [Unknown]
  - Disease recurrence [Not Recovered/Not Resolved]
  - Vascular neoplasm [Unknown]

NARRATIVE: CASE EVENT DATE: 20171115
